FAERS Safety Report 10177820 (Version 1)
Quarter: 2014Q2

REPORT INFORMATION
  Report Type: Spontaneous
  Country: US (occurrence: US)
  Receive Date: 20140516
  Receipt Date: 20140516
  Transmission Date: 20141212
  Serious: No
  Sender: FDA-Public Use
  Company Number: US-SA-2013SA108803

PATIENT
  Age: 55 Year
  Sex: Male

DRUGS (2)
  1. APIDRA SOLOSTAR [Suspect]
     Dosage: DOSE: VARIES WITH BLOOD SUGAR
     Route: 058
  2. SOLOSTAR [Concomitant]

REACTIONS (2)
  - Feeling abnormal [Unknown]
  - Injection site haemorrhage [Unknown]
